FAERS Safety Report 8158279-9 (Version None)
Quarter: 2012Q1

REPORT INFORMATION
  Report Type: 
  Country: None (occurrence: None)
  Receive Date: 20120223
  Receipt Date: 20120213
  Transmission Date: 20120608
  Serious: Yes (Death, Hospitalization, Other)
  Sender: FDA-Public Use
  Company Number: US-BIOGENIDEC-2012BI005758

PATIENT
  Sex: Female

DRUGS (2)
  1. AVONEX [Suspect]
     Indication: MULTIPLE SCLEROSIS
     Route: 030
     Dates: start: 20000201
  2. AVONEX [Suspect]
     Route: 030
     Dates: start: 20010819, end: 20110207

REACTIONS (3)
  - CONVULSION [None]
  - POST PROCEDURAL COMPLICATION [None]
  - JOINT DISLOCATION [None]
